FAERS Safety Report 11295000 (Version 3)
Quarter: 2016Q1

REPORT INFORMATION
  Report Type: Spontaneous
  Country: US (occurrence: US)
  Receive Date: 20150723
  Receipt Date: 20160125
  Transmission Date: 20160525
  Serious: No
  Sender: FDA-Public Use
  Company Number: US-009507513-1507USA003575

PATIENT
  Sex: Female
  Weight: 51.7 kg

DRUGS (1)
  1. NEXPLANON [Suspect]
     Active Substance: ETONOGESTREL
     Indication: CONTRACEPTION
     Dosage: UNK
     Route: 059
     Dates: start: 20141008, end: 20150501

REACTIONS (4)
  - Implant site discolouration [Recovered/Resolved]
  - Dry skin [Recovered/Resolved]
  - Implant site rash [Recovered/Resolved]
  - Administration site hypertrichosis [Recovered/Resolved]
